FAERS Safety Report 5737962-6 (Version None)
Quarter: 2008Q2

REPORT INFORMATION
  Report Type: 
  Country: None (occurrence: None)
  Receive Date: 20080514
  Receipt Date: 20080506
  Transmission Date: 20081010
  Serious: Yes (Death)
  Sender: FDA-Public Use
  Company Number: BR-BAXTER-2008BH001994

PATIENT
  Age: 47 Year
  Sex: Female
  Weight: 40 kg

DRUGS (2)
  1. ALBUMIN (HUMAN) [Suspect]
     Indication: HEPATIC CIRRHOSIS
     Route: 042
     Dates: start: 20080204, end: 20080204
  2. ALBUMIN (HUMAN) [Suspect]
     Indication: PERITONITIS BACTERIAL
     Route: 042
     Dates: start: 20080204, end: 20080204

REACTIONS (3)
  - DEATH [None]
  - DYSPNOEA [None]
  - FEELING ABNORMAL [None]
